FAERS Safety Report 8202283-9 (Version None)
Quarter: 2012Q1

REPORT INFORMATION
  Report Type: 
  Country: None (occurrence: None)
  Receive Date: 20120312
  Receipt Date: 20120306
  Transmission Date: 20120608
  Serious: Yes (Hospitalization, Other)
  Sender: FDA-Public Use
  Company Number: US-ELI_LILLY_AND_COMPANY-US201203002162

PATIENT
  Sex: Female

DRUGS (1)
  1. HUMATROPE [Suspect]
     Indication: HYPOPITUITARISM
     Dosage: 0.4 MG, QD
     Route: 058

REACTIONS (7)
  - DECUBITUS ULCER [None]
  - HYPERTENSION [None]
  - ADVERSE EVENT [None]
  - URINARY TRACT INFECTION [None]
  - CARDIAC FAILURE CONGESTIVE [None]
  - HOSPITALISATION [None]
  - HYPERTHYROIDISM [None]
